FAERS Safety Report 7991424-4 (Version None)
Quarter: 2011Q4

REPORT INFORMATION
  Report Type: 
  Country: None (occurrence: None)
  Receive Date: 20111219
  Receipt Date: 20111215
  Transmission Date: 20120403
  Serious: Yes (Congenital Anomaly, Other)
  Sender: FDA-Public Use
  Company Number: DE-ABBOTT-11P-062-0883583-00

PATIENT
  Sex: Male

DRUGS (1)
  1. VALPROIC ACID [Suspect]
     Indication: MATERNAL EXPOSURE TIMING UNSPECIFIED
     Route: 064

REACTIONS (4)
  - DYSMORPHISM [None]
  - DEVELOPMENTAL DELAY [None]
  - SCAPHOCEPHALY [None]
  - FOETAL EXPOSURE DURING PREGNANCY [None]
